FAERS Safety Report 9010726 (Version 1)
Quarter: 2013Q1

REPORT INFORMATION
  Report Type: Spontaneous
  Country: US (occurrence: US)
  Receive Date: 20130111
  Receipt Date: 20130111
  Transmission Date: 20140127
  Serious: Yes (Other)
  Sender: FDA-Public Use
  Company Number: PHEH2013US000921

PATIENT
  Sex: Female

DRUGS (9)
  1. DIOVAN [Suspect]
     Dosage: 1 DF(320 MG), ONCE DAILY
     Route: 048
  2. ATENOLOL [Concomitant]
  3. AMLODIPINE BESILATE [Concomitant]
  4. ASPIRIN [Concomitant]
     Dosage: UNK UKN, UNK
  5. PRAVASTATIN [Concomitant]
  6. COUMADINE [Concomitant]
  7. LANOXIN [Concomitant]
  8. ALLEGRA [Concomitant]
  9. NASONEX [Suspect]

REACTIONS (2)
  - Atrial fibrillation [Unknown]
  - Hypoacusis [Unknown]
